FAERS Safety Report 9612574 (Version 1)
Quarter: 2013Q4

REPORT INFORMATION
  Report Type: Report from Study
  Country: MX (occurrence: MX)
  Receive Date: 20131010
  Receipt Date: 20131010
  Transmission Date: 20140711
  Serious: Yes (Other)
  Sender: FDA-Public Use
  Company Number: PHHY2013MX113760

PATIENT
  Age: 37 Year
  Sex: Female

DRUGS (2)
  1. CO-DIOVAN [Suspect]
     Indication: HYPERTENSION
     Dosage: 1 DF (160/25 MG), DAILY
     Route: 048
     Dates: start: 201209, end: 201210
  2. CO-DIOVAN [Suspect]
     Dosage: 0.5 DF (160/25 MG), DAILY
     Route: 048

REACTIONS (3)
  - Congenital cystic kidney disease [Not Recovered/Not Resolved]
  - Hypersensitivity [Not Recovered/Not Resolved]
  - Wrong technique in drug usage process [Not Recovered/Not Resolved]
